FAERS Safety Report 17985901 (Version 4)
Quarter: 2021Q3

REPORT INFORMATION
  Report Type: Spontaneous
  Country: GB (occurrence: GB)
  Receive Date: 20200707
  Receipt Date: 20210706
  Transmission Date: 20211014
  Serious: Yes (Other)
  Sender: FDA-Public Use
  Company Number: GB-TEVA-2020-GB-1797478

PATIENT
  Age: 54 Year
  Sex: Male

DRUGS (173)
  1. LACTULOSE. [Suspect]
     Active Substance: LACTULOSE
     Indication: ILL-DEFINED DISORDER
     Dosage: 10 ML DAILY; THERAPY END DATE ASKU
     Route: 065
     Dates: start: 2006
  2. LACTULOSE. [Suspect]
     Active Substance: LACTULOSE
     Dosage: THERAPY END DATE ASKU
     Route: 065
     Dates: start: 2006
  3. SALBUTAMOL SULFATE [Suspect]
     Active Substance: ALBUTEROL SULFATE
     Dosage: UNK UNK, PRN , THERAPY END DATE : ASKU
     Route: 065
     Dates: start: 2006
  4. FUROSEMIDE. [Suspect]
     Active Substance: FUROSEMIDE
     Dosage: 40 MILLIGRAM DAILY; THERAPY START DATE ASKU, THERAPY END DATE ASKU
     Route: 048
  5. FUROSEMIDE. [Suspect]
     Active Substance: FUROSEMIDE
     Dosage: 20 MILLIGRAM DAILY; THERAPY END DATE : ASKU
     Route: 048
     Dates: start: 2006
  6. BACTROBAN [Suspect]
     Active Substance: MUPIROCIN\MUPIROCIN CALCIUM
     Indication: ILL-DEFINED DISORDER
     Dosage: UNK ,THERAPY END DATE ASKU
     Route: 065
     Dates: start: 2006
  7. BACTROBAN [Suspect]
     Active Substance: MUPIROCIN\MUPIROCIN CALCIUM
     Dosage: UNKNOWN/D , THERAPY END DATE : ASKU
     Route: 065
     Dates: start: 2006
  8. THIAMINE HYDROCHLORIDE. [Suspect]
     Active Substance: THIAMINE HYDROCHLORIDE
     Indication: ILL-DEFINED DISORDER
     Dosage: 100 MILLIGRAM DAILY; THERAPY END DATE : ASKU
     Route: 048
     Dates: start: 2006
  9. ALFENTANIL. [Suspect]
     Active Substance: ALFENTANIL
     Indication: ILL-DEFINED DISORDER
     Dosage: UNK , THERAPY END DATE : ASKU
     Route: 042
     Dates: start: 2006
  10. MAGNESIUM SULPHATE [Suspect]
     Active Substance: MAGNESIUM SULFATE
     Indication: ILL-DEFINED DISORDER
     Dosage: 10ML/50% 8MMOLS/50MLS,THERAPY START DATE ASKU, THERAPY END DATE ASKU
     Route: 065
  11. NOREPINEPHRINE. [Suspect]
     Active Substance: NOREPINEPHRINE
     Dosage: UNK , THERAPY START DATE AND END DATE : ASKU
     Route: 065
  12. INSULIN HUMAN NOS [Suspect]
     Active Substance: INSULIN HUMAN
     Indication: PNEUMONIA
     Dosage: 50 UNITS/50ML , THERAPY END DATE : ASKU
     Route: 042
     Dates: start: 2006
  13. INSULIN HUMAN NOS [Suspect]
     Active Substance: INSULIN HUMAN
     Dosage: UNK , THERAPY START DATE AND END DATE : ASKU
     Route: 042
  14. DOBUTAMINE [Suspect]
     Active Substance: DOBUTAMINE HYDROCHLORIDE
     Indication: ILL-DEFINED DISORDER
     Dosage: UNKNOWN/D. THERAPY END DATE ASKU
     Route: 065
     Dates: start: 2006
  15. DOBUTAMINE [Suspect]
     Active Substance: DOBUTAMINE HYDROCHLORIDE
     Dosage: UNKNOWN,THERAPY START DATE ASKU, THERAPY END DATE ASKU
     Route: 065
  16. TINZAPARIN [Suspect]
     Active Substance: TINZAPARIN
     Dosage: 3500 UL DAILY; THERAPY END DATE ASKU
     Route: 065
     Dates: start: 2006
  17. POTASSIUM CHLORIDE. [Suspect]
     Active Substance: POTASSIUM CHLORIDE
     Indication: PNEUMONIA
     Dosage: 6 DOSAGE FORMS DAILY; UNK, TID (0.33 DAY),THERAPY START DATE ASKU, THERAPY END DATE ASKU
     Route: 065
  18. ZOTON [Suspect]
     Active Substance: LANSOPRAZOLE
     Route: 065
  19. CHLORPHENIRAMINE MALEATE. [Suspect]
     Active Substance: CHLORPHENIRAMINE MALEATE
     Dosage: 10 MG,QID (DAILY DOSE: 40 MILLIGRAM(S), 10 MG, QID),THERAPY END DATE ASKU
     Route: 042
     Dates: start: 2006
  20. CHLORPHENIRAMINE MALEATE. [Suspect]
     Active Substance: CHLORPHENIRAMINE MALEATE
     Dosage: 10 MILLIGRAM DAILY; THERAPY START DATE ASKU, THERAPY END DATE ASKU
     Route: 042
  21. FUROSEMIDE. [Suspect]
     Active Substance: FUROSEMIDE
     Dosage: 40 MILLIGRAM DAILY; 20 MG, BID (40 MG) , THERAPY END DATE : ASKU
     Route: 042
     Dates: start: 2006
  22. SIMVASTATIN. [Suspect]
     Active Substance: SIMVASTATIN
     Dosage: 40 MILLIGRAM DAILY; THERAPY START DATE AND END DATE : ASKU
     Route: 042
  23. OMEPRAZOLE. [Suspect]
     Active Substance: OMEPRAZOLE
     Dosage: 40 MG ,THERAPY END DATE : ASKU
     Route: 042
     Dates: start: 2006
  24. ERYTHROMYCIN. [Concomitant]
     Active Substance: ERYTHROMYCIN
     Dosage: 250 MILLIGRAM DAILY; 250 MG , THERAPY START DATE AND END DATE : ASKU
     Route: 050
  25. FLUCONAZOLE. [Suspect]
     Active Substance: FLUCONAZOLE
     Indication: ILL-DEFINED DISORDER
     Dosage: 200 MILLIGRAM DAILY; THERAPY END DATE ASKU
     Route: 042
     Dates: start: 2006
  26. FLUCONAZOLE. [Suspect]
     Active Substance: FLUCONAZOLE
     Dosage: 20 MILLIGRAM DAILY; THERAPY START DATE ASKU, THERAPY END DATE ASKU
     Route: 065
  27. LORAZEPAM. [Suspect]
     Active Substance: LORAZEPAM
     Dosage: UNK, QD (1?2MG ONCE ONLY) , THERAPY END DATE : ASKU
     Route: 065
     Dates: start: 2006
  28. FUROSEMIDE. [Suspect]
     Active Substance: FUROSEMIDE
     Dosage: 40 MILLIGRAM DAILY; THERAPY START DATE ASKU, THERAPY END DATE ASKU
     Route: 048
  29. SIMVASTATIN. [Suspect]
     Active Substance: SIMVASTATIN
     Indication: ILL-DEFINED DISORDER
     Dosage: 40 MILLIGRAM DAILY; THERAPY START DATE AND END DATE : ASKU
     Route: 065
  30. PARACETAMOL [Suspect]
     Active Substance: ACETAMINOPHEN
     Dosage: UNK , THERAPY START DATE AND END DATE : ASKU
     Route: 065
  31. CLEXANE [Suspect]
     Active Substance: ENOXAPARIN SODIUM
     Dosage: 20 MILLIGRAM DAILY; THERAPY START DATE ASKU, THERAPY END DATE ASKU
     Route: 058
  32. PROPOFOL. [Suspect]
     Active Substance: PROPOFOL
     Indication: PNEUMONIA
     Dosage: UNK , THERAPY START DATE AND END DATE : ASKU
     Route: 042
  33. TINZAPARIN [Suspect]
     Active Substance: TINZAPARIN
     Dosage: 3500 UL DAILY; THERAPY START DATE ASKU, THERAPY END DATE ASKU
     Route: 065
  34. FLAMAZINE [Suspect]
     Active Substance: SILVER SULFADIAZINE
     Dosage: UNK , THERAPY START DATE AND END DATE : ASKU
     Route: 061
  35. ZOTON [Suspect]
     Active Substance: LANSOPRAZOLE
     Dosage: 30 MILLIGRAM DAILY; 30 MG,UNK , THERAPY END DATE ASKU
     Route: 065
     Dates: start: 2006
  36. ANHYDROUS CITRIC ACID [Suspect]
     Active Substance: ANHYDROUS CITRIC ACID
     Indication: PNEUMONIA
     Dosage: 100 MILLIGRAM DAILY; THERAPY START DATE AND END DATE : ASKU
     Route: 048
  37. HYDROCORTISONE HYDROGEN SUCCINATE [Suspect]
     Active Substance: HYDROCORTISONE HEMISUCCINATE ANHYDROUS
     Dosage: 100 MILLIGRAM DAILY; THERAPY START DATE AND END DATE : ASKU
     Route: 042
  38. TAZOCIN [Concomitant]
     Active Substance: PIPERACILLIN SODIUM\TAZOBACTAM SODIUM
     Dosage: 13.5 GRAM DAILY; THERAPY START DATE ASKU, THERAPY END DATE ASKU
     Route: 042
  39. ATROVENT [Concomitant]
     Active Substance: IPRATROPIUM BROMIDE
     Dosage: THERAPY START DATE ASKU, THERAPY END DATE ASKU,UNK
     Route: 065
  40. ATROVENT [Concomitant]
     Active Substance: IPRATROPIUM BROMIDE
     Dosage: THERAPY START DATE ASKU, THERAPY END DATE ASKU,DAILY DOSE TEXT: AS NECESSARY
     Route: 048
  41. ATROVENT [Concomitant]
     Active Substance: IPRATROPIUM BROMIDE
     Dosage: UNK , THERAPY START DATE AND END DATE : ASKU
     Route: 065
  42. ASPIRIN [ACETYLSALICYLIC ACID] [Concomitant]
     Active Substance: ASPIRIN
     Dosage: THERAPY START DATE ASKU, THERAPY END DATE ASKU
     Route: 065
  43. ZOPICLONE [Concomitant]
     Active Substance: ZOPICLONE
     Dosage: THERAPY START DATE ASKU, THERAPY END DATE ASKU
     Route: 048
  44. SALBUTAMOL SULFATE [Suspect]
     Active Substance: ALBUTEROL SULFATE
     Indication: ILL-DEFINED DISORDER
     Dosage: 1 DF, PRN , THERAPY START DATE AND END DATE : ASKU
     Route: 065
  45. AMOXICILLIN. [Suspect]
     Active Substance: AMOXICILLIN
     Indication: ILL-DEFINED DISORDER
     Dosage: 9 GRAM DAILY; 250 MG, TID (750 MG),THERAPY END DATE ASKU
     Route: 048
     Dates: start: 20060913
  46. THIAMINE HYDROCHLORIDE. [Suspect]
     Active Substance: THIAMINE HYDROCHLORIDE
     Dosage: 100 MILLIGRAM DAILY; THERAPY START DATE AND END DATE : ASKU
     Route: 048
  47. THIAMINE HYDROCHLORIDE. [Suspect]
     Active Substance: THIAMINE HYDROCHLORIDE
     Dosage: 100 MILLIGRAM DAILY; THERAPY START DATE AND END DATE : ASKU
     Route: 048
  48. HEPARIN SODIUM. [Suspect]
     Active Substance: HEPARIN SODIUM
     Dosage: UNK , THERAPY START AND END DATE: ASKED BUT UNKNOWN
     Route: 065
  49. ALFENTANIL. [Suspect]
     Active Substance: ALFENTANIL
     Dosage: UNK, THERAPY START DATE ASKU, THERAPY END DATE ASKU
     Route: 042
  50. SODIUM BICARBONATE. [Suspect]
     Active Substance: SODIUM BICARBONATE
     Dosage: 100 MG, QOW, THERAPY END DATE ASKU
     Route: 042
     Dates: start: 2006
  51. NOREPINEPHRINE. [Suspect]
     Active Substance: NOREPINEPHRINE
     Dosage: UNK , THERAPY START DATE AND END DATE : ASKU
     Route: 065
  52. INSULIN HUMAN NOS [Suspect]
     Active Substance: INSULIN HUMAN
     Dosage: UNK , THERAPY START DATE AND END DATE : ASKU
     Route: 042
  53. PROPOFOL. [Suspect]
     Active Substance: PROPOFOL
     Indication: ILL-DEFINED DISORDER
     Dosage: UNK , THERAPY END DATE : ASKU
     Route: 065
     Dates: start: 2006
  54. TINZAPARIN [Suspect]
     Active Substance: TINZAPARIN
     Indication: ILL-DEFINED DISORDER
     Dosage: 3500 MICROGRAM DAILY;
     Route: 065
     Dates: start: 2006
  55. POTASSIUM PHOSPHATE DIBASIC [Suspect]
     Active Substance: POTASSIUM PHOSPHATE, DIBASIC
     Indication: ILL-DEFINED DISORDER
     Dosage: UNK , THERAPY END DATE : ASKU
     Route: 065
     Dates: start: 2006
  56. POTASSIUM PHOSPHATE DIBASIC [Suspect]
     Active Substance: POTASSIUM PHOSPHATE, DIBASIC
     Dosage: UNK , THERAPY START DATE AND END DATE : ASKU
     Route: 065
  57. FRAGMIN [Suspect]
     Active Substance: DALTEPARIN SODIUM
     Indication: ILL-DEFINED DISORDER
     Dosage: 2500 IU (INTERNATIONAL UNIT) DAILY; THERAPY END DATE : ASKU
     Route: 058
     Dates: start: 2006
  58. POTASSIUM CHLORIDE. [Suspect]
     Active Substance: POTASSIUM CHLORIDE
     Indication: ILL-DEFINED DISORDER
     Dosage: THERAPY START DATE ASKU, THERAPY END DATE ASKU
     Route: 065
  59. HYDROCORTISONE HYDROGEN SUCCINATE [Suspect]
     Active Substance: HYDROCORTISONE HEMISUCCINATE ANHYDROUS
     Dosage: 100 MILLIGRAM DAILY; 100 MG, TOTAL , THERAPY START DATE AND END DATE : ASKU
     Route: 042
  60. FUROSEMIDE. [Suspect]
     Active Substance: FUROSEMIDE
     Dosage: 40 MILLIGRAM DAILY;  THERAPY  END DATE : ASKU
     Route: 042
     Dates: start: 2006
  61. TAZOCIN [Concomitant]
     Active Substance: PIPERACILLIN SODIUM\TAZOBACTAM SODIUM
     Dosage: 13.5 GRAM DAILY; THERAPY END DATE ASKU
     Route: 042
     Dates: start: 20061009
  62. ATROVENT [Concomitant]
     Active Substance: IPRATROPIUM BROMIDE
     Dosage: UNK UNK, PRN, THERAPY START DATE ASKU, THERAPY END DATE ASKU,PRN,UNK
     Route: 065
  63. ATROVENT [Concomitant]
     Active Substance: IPRATROPIUM BROMIDE
     Dosage: UNK , THERAPY START DATE ASKU, THERAPY END DATE ASKU
     Route: 048
  64. VANCOMYCIN [Concomitant]
     Active Substance: VANCOMYCIN
     Dosage: 1 GRAM DAILY; THERAPY START DATE ASKU, THERAPY END DATE ASKU
     Route: 042
  65. LACTULOSE. [Suspect]
     Active Substance: LACTULOSE
     Dosage: 10 ML DAILY; THERAPY START DATE ASKU, THERAPY END DATE ASKU
     Route: 065
  66. FLUCONAZOLE. [Suspect]
     Active Substance: FLUCONAZOLE
     Indication: PNEUMONIA
     Dosage: 200 MILLIGRAM DAILY; THERAPY START DATE ASKU, THERAPY END DATE ASKU
     Route: 042
  67. SALBUTAMOL SULFATE [Suspect]
     Active Substance: ALBUTEROL SULFATE
     Dosage: UNK, THERAPY START DATE AND END DATE : ASKU
     Route: 065
  68. CLEXANE [Suspect]
     Active Substance: ENOXAPARIN SODIUM
     Dosage: 20 MILLIGRAM DAILY; THERAPY START DATE ASKU, THERAPY END DATE ASKU
     Route: 058
  69. NOREPINEPHRINE. [Suspect]
     Active Substance: NOREPINEPHRINE
     Indication: PNEUMONIA
     Dosage: UNK , THERAPY START DATE AND END DATE : ASKU
     Route: 065
  70. INSULIN HUMAN NOS [Suspect]
     Active Substance: INSULIN HUMAN
     Dosage: UNK , THERAPY START DATE AND END DATE : ASKU
     Route: 065
  71. INSULIN HUMAN NOS [Suspect]
     Active Substance: INSULIN HUMAN
     Dosage: UNK , THERAPY END DATE : ASKU
     Route: 042
     Dates: start: 2006
  72. FLAMAZINE [Suspect]
     Active Substance: SILVER SULFADIAZINE
     Indication: ILL-DEFINED DISORDER
     Dosage: UNK , THERAPY START DATE AND END DATE : ASKU
     Route: 061
  73. PIRITON [Suspect]
     Active Substance: CHLORPHENIRAMINE MALEATE
     Indication: ILL-DEFINED DISORDER
     Dosage: 40 MILLIGRAM DAILY; UNKNOWN
     Route: 042
     Dates: start: 2006
  74. CALCIUM CHLORIDE DIHYDRATE [Suspect]
     Active Substance: CALCIUM CHLORIDE
     Indication: ILL-DEFINED DISORDER
     Dosage: DAILY DOSE:  UNKNOWN , THERAPY END DATE : ASKU
     Route: 065
     Dates: start: 2006
  75. SANDO K [POTASSIUM BICARBONATE;POTASSIUM CHLORIDE] [Suspect]
     Active Substance: POTASSIUM BICARBONATE\POTASSIUM CHLORIDE
     Indication: ILL-DEFINED DISORDER
  76. ZOTON [Suspect]
     Active Substance: LANSOPRAZOLE
     Dosage: 30 MILLIGRAM DAILY; THERAPY START DATE ASKU, THERAPY END DATE ASKU
     Route: 065
  77. POTASSIUM CANRENOATE [Suspect]
     Active Substance: CANRENOATE POTASSIUM
     Indication: ILL-DEFINED DISORDER
     Dosage: THERAPY START DATE ASKU, THERAPY END DATE ASKU
     Route: 065
  78. ATROVENT [Concomitant]
     Active Substance: IPRATROPIUM BROMIDE
     Dosage: UNK , THERAPY START DATE ASKU, THERAPY END DATE ASKU
     Route: 065
  79. CIPROFLOXACIN. [Concomitant]
     Active Substance: CIPROFLOXACIN
     Dosage: 400 MILLIGRAM DAILY; THERAPY START DATE AND END DATE : ASKU
     Route: 042
  80. AMOXICILLIN. [Concomitant]
     Active Substance: AMOXICILLIN
     Indication: ILL-DEFINED DISORDER
     Dosage: 250 MILLIGRAM DAILY; THERAPY END DATE : ASKU
     Route: 048
     Dates: start: 20060913
  81. FUROSEMIDE. [Suspect]
     Active Substance: FUROSEMIDE
     Indication: ILL-DEFINED DISORDER
     Dosage: 20 MILLIGRAM DAILY; THERAPY END DATE : ASKU
     Route: 048
     Dates: start: 2006
  82. FUROSEMIDE. [Suspect]
     Active Substance: FUROSEMIDE
     Dosage: 20 MILLIGRAM DAILY; THERAPY START DATE AND END DATE : ASKU
     Route: 048
  83. PARACETAMOL [Suspect]
     Active Substance: ACETAMINOPHEN
     Indication: ILL-DEFINED DISORDER
     Dosage: UNK , THERAPY END DATE : ASKU
     Route: 065
     Dates: start: 2006
  84. SODIUM CHLORIDE. [Suspect]
     Active Substance: SODIUM CHLORIDE
     Indication: PNEUMONIA
     Dosage: 0.9 PER CENT SOLUTION,THERAPY END DATE ASKU
     Route: 042
     Dates: start: 2006
  85. SODIUM CHLORIDE. [Suspect]
     Active Substance: SODIUM CHLORIDE
     Dosage: .9 PERCENT DAILY; 0.9 % ,THERAPY START DATE ASKU, THERAPY END DATE ASKU
     Route: 042
  86. HEPARIN SODIUM. [Suspect]
     Active Substance: HEPARIN SODIUM
     Indication: PRODUCT USED FOR UNKNOWN INDICATION
     Dosage: 3500 MICROGRAM DAILY; THERAPY START AND END DATE: ASKED BUT UNKNOWN
     Route: 065
  87. SODIUM BICARBONATE. [Suspect]
     Active Substance: SODIUM BICARBONATE
     Indication: PNEUMONIA
     Dosage: THERAPY START DATE ASKU, THERAPY END DATE ASKU?,100 MILLIGRAM (ADMINISTRATION OVER AN HOUR)
     Route: 042
  88. MAGNESIUM SULPHATE [Suspect]
     Active Substance: MAGNESIUM SULFATE
     Dosage: 10ML/50%8MMOLS/50MLS, THERAPY END DATE ASKU
     Route: 065
     Dates: start: 2006
  89. PHYTOMENADIONE [Suspect]
     Active Substance: PHYTONADIONE
     Indication: ILL-DEFINED DISORDER
     Dosage: UNK , THERAPY END DATE : ASKU
     Route: 065
     Dates: start: 2006
  90. INSULIN HUMAN NOS [Suspect]
     Active Substance: INSULIN HUMAN
     Dosage: 50 UNITS/50ML , THERAPY START DATE AND END DATE : ASKU
     Route: 042
  91. PROPOFOL. [Suspect]
     Active Substance: PROPOFOL
     Dosage: UNK , THERAPY START DATE AND END DATE : ASKU
     Route: 065
  92. CALCIUM GLUCONATE. [Suspect]
     Active Substance: CALCIUM GLUCONATE
     Indication: ILL-DEFINED DISORDER
     Dosage: 10 ML , THERAPY END DATE : ASKU
     Route: 042
     Dates: start: 2006
  93. FRAGMIN [Suspect]
     Active Substance: DALTEPARIN SODIUM
     Dosage: 200 IU (INTERNATIONAL UNIT) DAILY; THERAPY END DATE ASKU
     Route: 058
     Dates: start: 2006
  94. AQUASEPT [Suspect]
     Active Substance: TRICLOSAN
     Dosage: UNK , THERAPY START DATE AND END DATE : ASKU
     Route: 065
  95. AQUASEPT [Suspect]
     Active Substance: TRICLOSAN
     Dosage: UNKNOWN/D, THERAPY END DATE : ASKU
     Route: 065
     Dates: start: 2006
  96. PIRITON [Suspect]
     Active Substance: CHLORPHENIRAMINE MALEATE
     Dosage: 10 MILLIGRAM DAILY; THERAPY START DATE ASKU, THERAPY END DATE ASKU
     Route: 042
  97. POTASSIUM CHLORIDE. [Suspect]
     Active Substance: POTASSIUM CHLORIDE
     Dosage: 6 DOSAGE FORMS DAILY; THERAPY END DATE : ASKU
     Route: 061
     Dates: start: 2006
  98. SANDO K [POTASSIUM BICARBONATE;POTASSIUM CHLORIDE] [Suspect]
     Active Substance: POTASSIUM BICARBONATE\POTASSIUM CHLORIDE
     Indication: PRODUCT USED FOR UNKNOWN INDICATION
     Dosage: 3 DOSAGE FORMS DAILY; UNK UNK, TID , THERAPY START DATE ASKU, THERAPY END DATE ASKU
     Route: 061
  99. OMEPRAZOLE. [Suspect]
     Active Substance: OMEPRAZOLE
     Dosage: 40 MG , THERAPY START DATE AND END DATE : ASKU
     Route: 042
  100. TAZOCIN [Concomitant]
     Active Substance: PIPERACILLIN SODIUM\TAZOBACTAM SODIUM
     Dosage: 4.5 G (INCREASED TO 4 TIMES DAILY)
     Route: 042
     Dates: start: 20061004, end: 20061009
  101. ATROVENT [Concomitant]
     Active Substance: IPRATROPIUM BROMIDE
     Dosage: 1 DF, PRN , THERAPY START DATE ASKU, THERAPY END DATE ASKU
     Route: 065
  102. CIPROFLOXACIN. [Concomitant]
     Active Substance: CIPROFLOXACIN
     Dosage: 400 MILLIGRAM DAILY; THERAPY START DATE AND END DATE : ASKU
     Route: 042
  103. ASPIRIN [ACETYLSALICYLIC ACID] [Concomitant]
     Active Substance: ASPIRIN
     Indication: ILL-DEFINED DISORDER
     Dosage: UNKNOWN/D,THERAPY START DATE ASKU, THERAPY END DATE ASKU
     Route: 048
  104. ERYTHROMYCIN. [Concomitant]
     Active Substance: ERYTHROMYCIN
     Indication: ILL-DEFINED DISORDER
     Dosage: 250 MILLIGRAM DAILY; THERAPY START DATE AND END DATE : ASKU
     Route: 050
  105. METOCLOPRAMIDE. [Concomitant]
     Active Substance: METOCLOPRAMIDE
     Indication: ILL-DEFINED DISORDER
     Dosage: 10 MILLIGRAM DAILY; THERAPY START DATE AND END DATE : ASKU
     Route: 042
  106. SALBUTAMOL SULFATE [Suspect]
     Active Substance: ALBUTEROL SULFATE
     Indication: PNEUMONIA
     Dosage: UNK, PRN , THERAPY START DATE AND END DATE : ASKU
     Route: 065
  107. SALBUTAMOL SULFATE [Suspect]
     Active Substance: ALBUTEROL SULFATE
     Dosage: UNK , THERAPY  END DATE : ASKU
     Route: 065
     Dates: start: 2006
  108. BACTROBAN [Suspect]
     Active Substance: MUPIROCIN\MUPIROCIN CALCIUM
     Dosage: 10ML/50% 8MMOLS/50MLS , THERAPY END DATE : ASKU
     Route: 065
     Dates: start: 2006
  109. BACTROBAN [Suspect]
     Active Substance: MUPIROCIN\MUPIROCIN CALCIUM
     Dosage: UNK , THERAPY START DATE ASKU, THERAPY END DATE ASKU
     Route: 065
  110. SODIUM CHLORIDE. [Suspect]
     Active Substance: SODIUM CHLORIDE
     Indication: ILL-DEFINED DISORDER
     Dosage: UNK , THERAPY START DATE AND END DATE : ASKU
     Route: 042
  111. SODIUM CHLORIDE. [Suspect]
     Active Substance: SODIUM CHLORIDE
     Dosage: 0.9 % ,THERAPY START DATE ASKU, THERAPY END DATE ASKU
     Route: 042
  112. HEPARIN SODIUM. [Suspect]
     Active Substance: HEPARIN SODIUM
     Indication: ILL-DEFINED DISORDER
     Dosage: 3500 MICROGRAM DAILY; THERAPY START DATE AND END DATE : ASKU
     Route: 065
  113. NOREPINEPHRINE. [Suspect]
     Active Substance: NOREPINEPHRINE
     Indication: ILL-DEFINED DISORDER
     Dosage: UNK , THERAPY END DATE : ASKU
     Route: 065
     Dates: start: 2006
  114. TINZAPARIN [Suspect]
     Active Substance: TINZAPARIN
     Indication: PNEUMONIA
     Dosage: THERAPY START DATE ASKU, THERAPY END DATE ASKU
     Route: 065
  115. CALCIUM GLUCONATE. [Suspect]
     Active Substance: CALCIUM GLUCONATE
     Indication: PNEUMONIA
     Dosage: 10 ML , THERAPY START DATE AND END DATE : ASKU
     Route: 042
  116. FLAMAZINE [Suspect]
     Active Substance: SILVER SULFADIAZINE
     Dosage: UNK , THERAPY START DATE AND END DATE : ASKU
     Route: 061
  117. POTASSIUM CHLORIDE. [Suspect]
     Active Substance: POTASSIUM CHLORIDE
     Dosage: 3 DOSAGE FORMS DAILY; TID, THERAPY START DATE AND END DATE : ASKU , 40MMOLS/100ML INFUSION
     Route: 065
  118. POTASSIUM CHLORIDE. [Suspect]
     Active Substance: POTASSIUM CHLORIDE
     Dosage: 3 DOSAGE FORMS DAILY; THERAPY START DATE AND END DATE : ASKU
     Route: 065
  119. VITAMIN K1 [Suspect]
     Active Substance: PHYTONADIONE
     Indication: ILL-DEFINED DISORDER
     Route: 065
  120. ANHYDROUS CITRIC ACID [Suspect]
     Active Substance: ANHYDROUS CITRIC ACID
     Dosage: 100 MILLIGRAM DAILY; THERAPY END DATE : ASKU
     Route: 048
     Dates: start: 2006
  121. AMOXICILLIN TRIHYDRATE [Suspect]
     Active Substance: AMOXICILLIN
     Indication: ILL-DEFINED DISORDER
     Dosage: 750 MILLIGRAM DAILY; THERAPY END DATE : ASKU
     Route: 042
     Dates: start: 20060913
  122. AMOXICILLIN TRIHYDRATE [Suspect]
     Active Substance: AMOXICILLIN
     Dosage: 3 GRAM DAILY; THERAPY START DATE ASKU, THERAPY END DATE ASKU
     Route: 042
  123. TAZOCIN [Concomitant]
     Active Substance: PIPERACILLIN SODIUM\TAZOBACTAM SODIUM
     Indication: ILL-DEFINED DISORDER
     Dosage: 13.5 GRAM DAILY; THERAPY START DATE ASKU, THERAPY END DATE ASKU
     Route: 042
  124. TAZOCIN [Concomitant]
     Active Substance: PIPERACILLIN SODIUM\TAZOBACTAM SODIUM
     Dosage: 18 MILLIGRAM DAILY;
     Route: 042
     Dates: start: 20061004, end: 20061009
  125. ERYTHROMYCIN. [Concomitant]
     Active Substance: ERYTHROMYCIN
     Dosage: 250 MILLIGRAM DAILY; 250 MG, QD , THERAPY START DATE AND END DATE : ASKU
     Route: 050
  126. MIDODRINE [Concomitant]
     Active Substance: MIDODRINE
     Indication: ILL-DEFINED DISORDER
     Dosage: THERAPY START DATE ASKU, THERAPY END DATE ASKU
     Route: 048
  127. ZOPICLONE [Concomitant]
     Active Substance: ZOPICLONE
     Indication: ILL-DEFINED DISORDER
     Dosage: THERAPY START DATE ASKU, THERAPY END DATE ASKU
     Route: 048
  128. LORAZEPAM. [Suspect]
     Active Substance: LORAZEPAM
     Indication: ILL-DEFINED DISORDER
     Dosage: UNK, QD (1?2MG ONCE ONLY) , THERAPY START DATE AND END DATE : ASKU
     Route: 065
  129. LORAZEPAM. [Suspect]
     Active Substance: LORAZEPAM
     Dosage: UNK , THERAPY START DATE AND END DATE : ASKU
     Route: 065
  130. SIMVASTATIN. [Suspect]
     Active Substance: SIMVASTATIN
     Dosage: 40 MILLIGRAM DAILY; THERAPY START DATE AND END DATE : ASKU
     Route: 065
  131. MAGNESIUM SULPHATE [Suspect]
     Active Substance: MAGNESIUM SULFATE
     Indication: PNEUMONIA
     Dosage: THERAPY START DATE ASKU, THERAPY END DATE ASKU, UNK
     Route: 065
  132. CLEXANE [Suspect]
     Active Substance: ENOXAPARIN SODIUM
     Indication: ILL-DEFINED DISORDER
     Dosage: 20 MILLIGRAM DAILY; THERAPY START DATE : ASKU THERAPY END DATE ASKU
     Route: 058
  133. CLEXANE [Suspect]
     Active Substance: ENOXAPARIN SODIUM
     Indication: PNEUMONIA
     Dosage: 20 MILLIGRAM DAILY; THERAPY END DATE ASKU
     Route: 058
     Dates: start: 2006
  134. NOREPINEPHRINE. [Suspect]
     Active Substance: NOREPINEPHRINE
     Dosage: UNK , THERAPY END DATE : ASKU
     Route: 065
     Dates: start: 2006
  135. CEFTRIAXONE SODIUM. [Suspect]
     Active Substance: CEFTRIAXONE SODIUM
     Indication: ILL-DEFINED DISORDER
     Dosage: 2 GRAM DAILY; THERAPY END DATE : ASKU
     Route: 042
     Dates: start: 2006
  136. CEFTRIAXONE SODIUM. [Suspect]
     Active Substance: CEFTRIAXONE SODIUM
     Dosage: 2G , THERAPY START DATE AND END DATE : ASKU
     Route: 042
  137. TINZAPARIN [Suspect]
     Active Substance: TINZAPARIN
     Dosage: 3500 UL DAILY; THERAPY END DATE ASKU
     Route: 065
     Dates: start: 2006
  138. FRAGMIN [Suspect]
     Active Substance: DALTEPARIN SODIUM
     Indication: PNEUMONIA
     Dosage: 200 IU (INTERNATIONAL UNIT) DAILY; THERAPY START DATE ASKU, THERAPY END DATE ASKU
     Route: 058
  139. AQUASEPT [Suspect]
     Active Substance: TRICLOSAN
     Indication: ILL-DEFINED DISORDER
     Dosage: UNK , THERAPY START DATE AND END DATE : ASKU
     Route: 065
  140. AQUASEPT [Suspect]
     Active Substance: TRICLOSAN
     Dosage: UNK , THERAPY END DATE : ASKU
     Route: 065
     Dates: start: 2006
  141. POTASSIUM CHLORIDE. [Suspect]
     Active Substance: POTASSIUM CHLORIDE
     Dosage: UNK, QD , THERAPY END DATE END DATE : ASKU
     Route: 065
     Dates: start: 2006
  142. POTASSIUM CHLORIDE. [Suspect]
     Active Substance: POTASSIUM CHLORIDE
     Dosage: 6 DOSAGE FORMS DAILY; THERAPY START DATE AND END DATE : ASKU
     Route: 061
  143. VITAMIN K1 [Suspect]
     Active Substance: PHYTONADIONE
     Indication: PNEUMONIA
  144. ZOTON [Suspect]
     Active Substance: LANSOPRAZOLE
     Indication: ILL-DEFINED DISORDER
     Dosage: 30MG,THERAPY START DATE ASKU, THERAPY END DATE ASKU
     Route: 065
  145. ZOTON [Suspect]
     Active Substance: LANSOPRAZOLE
     Dosage: 30 MILLIGRAM DAILY; 30MG,THERAPY START DATE ASKU, THERAPY END DATE ASKU
     Route: 065
  146. ANHYDROUS CITRIC ACID [Suspect]
     Active Substance: ANHYDROUS CITRIC ACID
     Indication: ILL-DEFINED DISORDER
     Dosage: 100 MILLIGRAM DAILY; THERAPY START DATE AND END DATE : ASKU
     Route: 065
  147. HYDROCORTISONE HYDROGEN SUCCINATE [Suspect]
     Active Substance: HYDROCORTISONE HEMISUCCINATE ANHYDROUS
     Indication: ILL-DEFINED DISORDER
     Dosage: 100 MILLIGRAM DAILY; THERAPY START DATE AND END DATE : ASKU
     Route: 042
  148. HYDROCORTISONE HYDROGEN SUCCINATE [Suspect]
     Active Substance: HYDROCORTISONE HEMISUCCINATE ANHYDROUS
     Dosage: 100 MILLIGRAM DAILY; 100 MG, TOTAL , THERAPY END DATE : ASKU
     Route: 042
     Dates: start: 2006
  149. CHLORPHENIRAMINE MALEATE. [Suspect]
     Active Substance: CHLORPHENIRAMINE MALEATE
     Indication: PNEUMONIA
     Dosage: 10 MILLIGRAM DAILY; 10MG,THERAPY END DATE ASKU
     Route: 042
     Dates: start: 2006
  150. FUROSEMIDE. [Suspect]
     Active Substance: FUROSEMIDE
     Indication: ILL-DEFINED DISORDER
     Dosage: 40 MILLIGRAM DAILY; THERAPY START DATE AND END DATE : ASKU
     Route: 042
  151. SIMVASTATIN. [Suspect]
     Active Substance: SIMVASTATIN
     Indication: ILL-DEFINED DISORDER
     Dosage: 40 MILLIGRAM DAILY; THERAPY END DATE : ASKU
     Route: 042
     Dates: start: 2006
  152. OMEPRAZOLE. [Suspect]
     Active Substance: OMEPRAZOLE
     Indication: PNEUMONIA
     Dosage: 40 MG , THERAPY START DATE AND END DATE : ASKU
     Route: 042
  153. TAZOCIN [Concomitant]
     Active Substance: PIPERACILLIN SODIUM\TAZOBACTAM SODIUM
     Dosage: 18 MILLIGRAM DAILY; THERAPY END DATE ASKU
     Route: 042
     Dates: start: 2006
  154. ATROVENT [Concomitant]
     Active Substance: IPRATROPIUM BROMIDE
     Dosage: UNK, PRN , THERAPY START DATE ASKU, THERAPY END DATE ASKU
     Route: 065
  155. ATROVENT [Concomitant]
     Active Substance: IPRATROPIUM BROMIDE
     Dosage: THERAPY START DATE ASKU, THERAPY END DATE ASKU
     Route: 065
  156. CIPROFLOXACIN. [Concomitant]
     Active Substance: CIPROFLOXACIN
     Indication: ILL-DEFINED DISORDER
     Dosage: 400 MILLIGRAM DAILY; THERAPY START DATE AND END DATE : ASKU
     Route: 042
  157. VANCOMYCIN [Concomitant]
     Active Substance: VANCOMYCIN
     Indication: ILL-DEFINED DISORDER
     Dosage: 1 GRAM DAILY; THERAPY START DATE ASKU, THERAPY END DATE ASKU
     Route: 042
  158. METOCLOPRAMIDE. [Concomitant]
     Active Substance: METOCLOPRAMIDE
     Dosage: 10 MG , THERAPY START DATE AND END DATE : ASKU
     Route: 042
  159. MIDODRINE [Concomitant]
     Active Substance: MIDODRINE
     Dosage: THERAPY START DATE ASKU, THERAPY END DATE ASKU
     Route: 048
  160. PANTOPRAZOLE [Concomitant]
     Active Substance: PANTOPRAZOLE
     Indication: ILL-DEFINED DISORDER
     Dosage: 40 MILLIGRAM DAILY; THERAPY START DATE ASKU, THERAPY END DATE ASKU
     Route: 042
  161. PANTOPRAZOLE [Concomitant]
     Active Substance: PANTOPRAZOLE
     Dosage: 40 MILLIGRAM DAILY; THERAPY START DATE ASKU, THERAPY END DATE ASKU
     Route: 042
  162. ASPIRIN KOMPLEX [Concomitant]
     Indication: ILL-DEFINED DISORDER
     Dosage: UNK  , THERAPY START DATE ASKU, THERAPY END DATE ASKU
  163. FUROSEMIDE. [Suspect]
     Active Substance: FUROSEMIDE
     Dosage: 480 MILLIGRAM DAILY; UNK , THERAPY START DATE ASKU, THERAPY END DATE ASKU
     Route: 048
  164. AMOXICILLIN. [Suspect]
     Active Substance: AMOXICILLIN
     Dosage: THERAPY START DATE ASKU, THERAPY END DATE ASKU
     Route: 065
  165. BACTROBAN [Suspect]
     Active Substance: MUPIROCIN\MUPIROCIN CALCIUM
     Dosage: THERAPY START DATE ASKU, THERAPY END DATE ASKU
     Route: 065
  166. ALFENTANIL. [Suspect]
     Active Substance: ALFENTANIL
     Dosage: UNK , THERAPY START DATE ASKU, THERAPY END DATE ASKU
     Route: 042
  167. SODIUM BICARBONATE. [Suspect]
     Active Substance: SODIUM BICARBONATE
     Indication: ILL-DEFINED DISORDER
     Dosage: FORM OF ADMIN:  UNKNOWN, ADMINISTRATION OVER AN HOUR, 100 MG,THERAPY END DATE ASKU
     Route: 042
     Dates: start: 2006
  168. CEFTRIAXONE SODIUM. [Suspect]
     Active Substance: CEFTRIAXONE SODIUM
     Dosage: 2 G , THERAPY START DATE AND END DATE : ASKU
     Route: 042
  169. PIRITON [Suspect]
     Active Substance: CHLORPHENIRAMINE MALEATE
     Dosage: 10 MILLIGRAM DAILY; THERAPY START DATE ASKU, THERAPY END DATE ASKU
     Route: 042
  170. POTASSIUM CHLORIDE. [Suspect]
     Active Substance: POTASSIUM CHLORIDE
     Dosage: 2 DOSAGE FORMS DAILY; THERAPY START DATE AND END DATE : ASKU
     Route: 065
  171. ATROVENT [Concomitant]
     Active Substance: IPRATROPIUM BROMIDE
     Indication: ILL-DEFINED DISORDER
     Dosage: THERAPY START DATE ASKU, THERAPY END DATE ASKU
     Route: 065
  172. ATROVENT [Concomitant]
     Active Substance: IPRATROPIUM BROMIDE
     Dosage: THERAPY START DATE ASKU, THERAPY END DATE ASKU,UNK UNK, PRN
     Route: 065
  173. CO?AMOXICLAV [AMOXICILLIN;CLAVULANATE POTASSIUM] [Concomitant]
     Active Substance: AMOXICILLIN\CLAVULANATE POTASSIUM
     Dosage: 1125 MILLIGRAM DAILY; 375 MILLIGRAM, Q8H (DAILY DOSE TEXT: 375MG 3/1DAYS), TID , THERAPY END DATE :
     Route: 065
     Dates: start: 20060913

REACTIONS (3)
  - Toxic epidermal necrolysis [Unknown]
  - Product use in unapproved indication [Unknown]
  - Drug hypersensitivity [Unknown]

NARRATIVE: CASE EVENT DATE: 2006
